FAERS Safety Report 20172153 (Version 1)
Quarter: 2021Q4

REPORT INFORMATION
  Report Type: Spontaneous
  Country: US (occurrence: US)
  Receive Date: 20211210
  Receipt Date: 20211210
  Transmission Date: 20220303
  Serious: No
  Sender: FDA-Public Use
  Company Number: US-NOVOPROD-790691

PATIENT
  Age: 28 Year
  Sex: Female

DRUGS (1)
  1. LEVEMIR [Suspect]
     Active Substance: INSULIN DETEMIR
     Indication: Product used for unknown indication
     Dosage: 15 IU, QD
     Route: 065
     Dates: start: 202007

REACTIONS (3)
  - Somnolence [Unknown]
  - Cold sweat [Unknown]
  - Device failure [Unknown]

NARRATIVE: CASE EVENT DATE: 20210222
